FAERS Safety Report 8196188-X (Version None)
Quarter: 2012Q1

REPORT INFORMATION
  Report Type: 
  Country: None (occurrence: None)
  Receive Date: 20120307
  Receipt Date: 20120307
  Transmission Date: 20120608
  Serious: No
  Sender: FDA-Public Use
  Company Number: None

PATIENT
  Age: 61 Year
  Sex: Male

DRUGS (1)
  1. ISONIAZID [Suspect]
     Dates: start: 20090220, end: 20090316

REACTIONS (5)
  - INTERNATIONAL NORMALISED RATIO INCREASED [None]
  - LIVER INJURY [None]
  - HEPATOTOXICITY [None]
  - ABDOMINAL PAIN LOWER [None]
  - JAUNDICE [None]
